FAERS Safety Report 19871093 (Version 1)
Quarter: 2021Q3

REPORT INFORMATION
  Report Type: Spontaneous
  Country: US (occurrence: US)
  Receive Date: 20210922
  Receipt Date: 20210922
  Transmission Date: 20211014
  Serious: Yes (Death, Other)
  Sender: FDA-Public Use
  Company Number: US-PERRIGO-21US026492

PATIENT
  Age: 61 Year

DRUGS (1)
  1. RANITIDINE HYDROCHLORIDE (852) [Suspect]
     Active Substance: RANITIDINE HYDROCHLORIDE
     Indication: DYSPEPSIA
     Dosage: DOSE FREQUENCY: OTHER ? 3X/DAY
     Route: 048
     Dates: start: 200001, end: 201801

REACTIONS (3)
  - Oesophageal carcinoma [Fatal]
  - Colorectal cancer [Fatal]
  - Skin cancer [Fatal]

NARRATIVE: CASE EVENT DATE: 20160101
